FAERS Safety Report 21223357 (Version 1)
Quarter: 2022Q3

REPORT INFORMATION
  Report Type: Spontaneous
  Country: AU (occurrence: AU)
  Receive Date: 20220817
  Receipt Date: 20220817
  Transmission Date: 20221026
  Serious: Yes (Other)
  Sender: FDA-Public Use
  Company Number: AU-MYLANLABS-2022M1047900

PATIENT
  Sex: Female

DRUGS (2)
  1. CLOZARIL [Suspect]
     Active Substance: CLOZAPINE
     Indication: Schizophrenia
     Dosage: 25 MILLIGRAM
     Route: 048
     Dates: start: 20180618, end: 20220603
  2. ARIPIPRAZOLE [Concomitant]
     Active Substance: ARIPIPRAZOLE
     Indication: Schizophrenia
     Dosage: 10 MILLIGRAM
     Route: 065

REACTIONS (5)
  - Cough [Unknown]
  - Osteoporosis [Unknown]
  - Drug level increased [Unknown]
  - Urinary tract infection [Unknown]
  - Orthostatic hypotension [Unknown]
